FAERS Safety Report 10917725 (Version 1)
Quarter: 2015Q1

REPORT INFORMATION
  Report Type: Report from Study
  Country: DE (occurrence: DE)
  Receive Date: 20150316
  Receipt Date: 20150316
  Transmission Date: 20150721
  Serious: Yes (Hospitalization)
  Sender: FDA-Public Use
  Company Number: DE-ABBVIE-15K-062-1359643-00

PATIENT
  Sex: Male

DRUGS (3)
  1. PREGABALINE [Concomitant]
     Active Substance: PREGABALIN
     Indication: OSTEOCHONDROSIS
  2. DOLOVISANO [Concomitant]
     Indication: OSTEOCHONDROSIS
  3. HUMIRA [Suspect]
     Active Substance: ADALIMUMAB
     Indication: CROHN^S DISEASE
     Route: 058
     Dates: start: 20081208

REACTIONS (4)
  - Musculoskeletal discomfort [Unknown]
  - Soft tissue inflammation [Recovering/Resolving]
  - Soft tissue inflammation [Recovered/Resolved]
  - Wound [Recovered/Resolved]
